FAERS Safety Report 19938012 (Version 1)
Quarter: 2021Q4

REPORT INFORMATION
  Report Type: Spontaneous
  Country: US (occurrence: US)
  Receive Date: 20211011
  Receipt Date: 20211011
  Transmission Date: 20220304
  Serious: No
  Sender: FDA-Public Use
  Company Number: US-ROCHE-2711207

PATIENT
  Sex: Male
  Weight: 127.12 kg

DRUGS (6)
  1. ZELBORAF [Suspect]
     Active Substance: VEMURAFENIB
     Indication: Lung disorder
     Route: 048
     Dates: start: 20200804, end: 20200805
  2. COTELLIC [Suspect]
     Active Substance: COBIMETINIB
     Indication: Product used for unknown indication
     Dosage: ONGOING: UNKNOWN
     Route: 048
     Dates: start: 20200730
  3. KEYTRUDA [Concomitant]
     Active Substance: PEMBROLIZUMAB
     Dosage: ONGOING: UNKNOWN
     Route: 042
     Dates: start: 20200730
  4. MEKINIST [Concomitant]
     Active Substance: TRAMETINIB DIMETHYL SULFOXIDE
     Dosage: ONGOING: UNKNOWN
     Route: 048
     Dates: start: 20200730
  5. DOCUSATE SODIUM [Concomitant]
     Active Substance: DOCUSATE SODIUM
     Dosage: ONGOING: UNKNOWN
     Route: 048
     Dates: start: 20200730
  6. FLONASE [Concomitant]
     Active Substance: FLUTICASONE PROPIONATE
     Dosage: ONGOING: UNKNOWN
     Route: 045
     Dates: start: 20200730

REACTIONS (3)
  - Intentional product use issue [Unknown]
  - Off label use [Unknown]
  - No adverse event [Unknown]
